FAERS Safety Report 9498531 (Version 2)
Quarter: 2013Q3

REPORT INFORMATION
  Report Type: Report from Study
  Country: JP (occurrence: JP)
  Receive Date: 20130904
  Receipt Date: 20130911
  Transmission Date: 20140515
  Serious: Yes (Other)
  Sender: FDA-Public Use
  Company Number: JP-GLAXOSMITHKLINE-B0919995A

PATIENT
  Age: 77 Year
  Sex: Female

DRUGS (7)
  1. REQUIP [Suspect]
     Indication: PARKINSON^S DISEASE
     Dosage: 2MG PER DAY
     Route: 048
     Dates: start: 20130826, end: 20130827
  2. MADOPAR [Concomitant]
     Indication: PARKINSON^S DISEASE
     Route: 048
     Dates: end: 20130828
  3. TRERIEF [Concomitant]
     Indication: PARKINSON^S DISEASE
     Route: 048
     Dates: end: 20130828
  4. MIRAPEX-LA [Concomitant]
     Indication: PARKINSON^S DISEASE
     Dosage: 3MG PER DAY
     Route: 048
     Dates: end: 20130828
  5. FP-OD [Concomitant]
     Indication: PARKINSON^S DISEASE
     Route: 048
     Dates: end: 20130828
  6. PRORENAL [Concomitant]
     Route: 048
     Dates: end: 20130828
  7. PURSENNID [Concomitant]
     Route: 048
     Dates: end: 20130828

REACTIONS (1)
  - Ileus [Recovered/Resolved]
